FAERS Safety Report 8350912-1 (Version None)
Quarter: 2012Q2

REPORT INFORMATION
  Report Type: 
  Country: None (occurrence: None)
  Receive Date: 20120510
  Receipt Date: 20120503
  Transmission Date: 20120825
  Serious: Yes (Other)
  Sender: FDA-Public Use
  Company Number: US-PFIZER INC-2012083576

PATIENT
  Sex: Female
  Weight: 77.098 kg

DRUGS (5)
  1. TIMOLOL [Concomitant]
     Dosage: UNK
  2. LATANOPROST [Suspect]
     Indication: GLAUCOMA
     Dosage: UNK
     Route: 047
     Dates: start: 20120301, end: 20120301
  3. BRIMONIDINE [Concomitant]
     Dosage: UNK
  4. PREMARIN [Concomitant]
     Dosage: UNK
  5. XALATAN [Suspect]
     Indication: GLAUCOMA
     Dosage: UNK
     Route: 047
     Dates: end: 20120301

REACTIONS (4)
  - DRY EYE [None]
  - EYE PAIN [None]
  - GLAUCOMA [None]
  - SUPERFICIAL INJURY OF EYE [None]
